FAERS Safety Report 14103358 (Version 2)
Quarter: 2018Q3

REPORT INFORMATION
  Report Type: Report from Study
  Country: None (occurrence: JP)
  Receive Date: 20171018
  Receipt Date: 20180830
  Transmission Date: 20181010
  Serious: Yes (Death)
  Sender: FDA-Public Use
  Company Number: JP-BAUSCH-BL-2017-029370

PATIENT
  Age: 82 Year
  Sex: Male
  Weight: 30 kg

DRUGS (34)
  1. HALOSTEN [Concomitant]
     Active Substance: HALOPERIDOL
     Indication: PRODUCT USED FOR UNKNOWN INDICATION
     Route: 048
     Dates: start: 20140228, end: 20140606
  2. HALOSTEN [Concomitant]
     Active Substance: HALOPERIDOL
     Route: 048
     Dates: start: 20150619, end: 20150702
  3. MIYA?BM [Concomitant]
     Active Substance: CLOSTRIDIUM BUTYRICUM SPORES STRAIN M-55
     Indication: PRODUCT USED FOR UNKNOWN INDICATION
     Route: 048
     Dates: start: 20140326
  4. INCREMIN [Concomitant]
     Active Substance: FERRIC PYROPHOSPHATE
     Indication: PRODUCT USED FOR UNKNOWN INDICATION
     Route: 048
     Dates: start: 20140523, end: 20140619
  5. CHOREAZINE TABLETS 12.5 MG [Suspect]
     Active Substance: TETRABENAZINE
     Dosage: TETRABENAZINE WAS INCREASED TO 50 MG/DAY
     Route: 048
     Dates: start: 20140416, end: 20140422
  6. CHOREAZINE TABLETS 12.5 MG [Suspect]
     Active Substance: TETRABENAZINE
     Dosage: TETRABENAZINE WAS INCREASED TO 75 MG/DAY
     Route: 048
     Dates: start: 20140430, end: 20140516
  7. HALOSTEN [Concomitant]
     Active Substance: HALOPERIDOL
     Route: 048
     Dates: start: 20150814, end: 20150903
  8. HALOSTEN [Concomitant]
     Active Substance: HALOPERIDOL
     Route: 048
     Dates: start: 20150904, end: 20150917
  9. FERROMIA [Concomitant]
     Active Substance: SODIUM FERROUS CITRATE
     Indication: PRODUCT USED FOR UNKNOWN INDICATION
     Route: 048
     Dates: start: 20140326, end: 20140522
  10. RISPERIDONE. [Concomitant]
     Active Substance: RISPERIDONE
     Route: 048
     Dates: start: 20151009
  11. CHOREAZINE TABLETS 12.5 MG [Suspect]
     Active Substance: TETRABENAZINE
     Dosage: TETRABENAZINE WAS INCREASED TO 37.5 MG/DAY
     Route: 048
     Dates: start: 20140409, end: 20140415
  12. HALOSTEN [Concomitant]
     Active Substance: HALOPERIDOL
     Route: 048
     Dates: start: 20151030, end: 20151119
  13. HALOSTEN [Concomitant]
     Active Substance: HALOPERIDOL
     Route: 048
     Dates: start: 20151218, end: 20160128
  14. CHOREAZINE TABLETS 12.5 MG [Suspect]
     Active Substance: TETRABENAZINE
     Indication: HUNTINGTON^S DISEASE
     Dosage: PATIENT WAS STARTED ON TETRABENAZINE AT 12.5 MG/DAY
     Route: 048
     Dates: start: 20140326, end: 20140401
  15. CHOREAZINE TABLETS 12.5 MG [Suspect]
     Active Substance: TETRABENAZINE
     Dosage: TETRABENAZINE WAS INCREASED TO 62.5 MG/DAY
     Route: 048
     Dates: start: 20140423, end: 20140429
  16. HALOSTEN [Concomitant]
     Active Substance: HALOPERIDOL
     Route: 048
     Dates: start: 20140612, end: 20150618
  17. HALOSTEN [Concomitant]
     Active Substance: HALOPERIDOL
     Route: 048
     Dates: start: 20151002, end: 20151029
  18. TAKEPRON [Concomitant]
     Active Substance: LANSOPRAZOLE
     Indication: PRODUCT USED FOR UNKNOWN INDICATION
     Route: 048
     Dates: start: 20140326
  19. CHOREAZINE TABLETS 12.5 MG [Suspect]
     Active Substance: TETRABENAZINE
     Dosage: TETRABENAZINE WAS INCREASED TO 25 MG/DAY
     Route: 048
     Dates: start: 20140402, end: 20140408
  20. HALOSTEN [Concomitant]
     Active Substance: HALOPERIDOL
     Route: 048
     Dates: start: 20140607, end: 201406
  21. HALOSTEN [Concomitant]
     Active Substance: HALOPERIDOL
     Route: 048
     Dates: start: 20150703, end: 20150716
  22. HALOSTEN [Concomitant]
     Active Substance: HALOPERIDOL
     Route: 048
     Dates: start: 20151120, end: 20151217
  23. CRAVIT [Concomitant]
     Active Substance: LEVOFLOXACIN
     Indication: PRODUCT USED FOR UNKNOWN INDICATION
     Route: 048
     Dates: start: 20141224, end: 20141230
  24. RISPERIDONE. [Concomitant]
     Active Substance: RISPERIDONE
     Indication: PRODUCT USED FOR UNKNOWN INDICATION
     Route: 048
     Dates: start: 20150903, end: 20150910
  25. HALOSTEN [Concomitant]
     Active Substance: HALOPERIDOL
     Route: 048
     Dates: start: 20150731, end: 20150813
  26. HOKUNALIN [Concomitant]
     Active Substance: TULOBUTEROL
     Indication: PRODUCT USED FOR UNKNOWN INDICATION
     Dosage: TAPE
     Route: 050
     Dates: start: 20141224
  27. CHOREAZINE TABLETS 12.5 MG [Suspect]
     Active Substance: TETRABENAZINE
     Dosage: TETRABENAZINE WAS INCREASED TO 100 MG/DAY
     Route: 048
     Dates: start: 20140531
  28. HALOSTEN [Concomitant]
     Active Substance: HALOPERIDOL
     Route: 048
     Dates: start: 20150717, end: 20150730
  29. ULCERLMIN [Concomitant]
     Active Substance: SUCRALFATE
     Indication: PRODUCT USED FOR UNKNOWN INDICATION
     Route: 048
     Dates: start: 20140326, end: 20140424
  30. RISPERIDONE. [Concomitant]
     Active Substance: RISPERIDONE
     Route: 048
     Dates: start: 20150911, end: 20151008
  31. CHOREAZINE TABLETS 12.5 MG [Suspect]
     Active Substance: TETRABENAZINE
     Dosage: TETRABENAZINE WAS INCREASED TO 87.5 MG/DAY.
     Route: 048
     Dates: start: 20140517, end: 20140530
  32. HALOSTEN [Concomitant]
     Active Substance: HALOPERIDOL
     Route: 048
     Dates: start: 20150918, end: 20151001
  33. AZULENE?GLUTAMINE [Concomitant]
     Indication: PRODUCT USED FOR UNKNOWN INDICATION
     Dosage: FINE GRANULE
     Route: 048
     Dates: start: 20140925
  34. LAC?B [Concomitant]
     Active Substance: BIFIDOBACTERIUM SPP.
     Indication: PRODUCT USED FOR UNKNOWN INDICATION
     Route: 048
     Dates: start: 20140326, end: 20140911

REACTIONS (1)
  - Death [Fatal]

NARRATIVE: CASE EVENT DATE: 20171006
